FAERS Safety Report 6706047-4 (Version None)
Quarter: 2010Q2

REPORT INFORMATION
  Report Type: 
  Country: None (occurrence: None)
  Receive Date: 20100429
  Receipt Date: 20100419
  Transmission Date: 20101027
  Serious: No
  Sender: FDA-Public Use
  Company Number: 8037619

PATIENT
  Sex: Female
  Weight: 2.3133 kg

DRUGS (5)
  1. KEPPRA [Suspect]
     Dosage: (500 MG BID TRANSPLACENTAL), (1000 MG TRANSPLACENTAL)
     Route: 064
     Dates: start: 20080105, end: 20080111
  2. KEPPRA [Suspect]
     Dosage: (500 MG BID TRANSPLACENTAL), (1000 MG TRANSPLACENTAL)
     Route: 064
     Dates: start: 20080112, end: 20080221
  3. VALTREX [Concomitant]
  4. IRON [Concomitant]
  5. PRENATAL VITAMINS [Concomitant]

REACTIONS (5)
  - ACROCHORDON [None]
  - ANAEMIA [None]
  - CONGENITAL NAEVUS [None]
  - MATERNAL DRUGS AFFECTING FOETUS [None]
  - NAEVUS FLAMMEUS [None]
